FAERS Safety Report 7870116-6 (Version None)
Quarter: 2011Q4

REPORT INFORMATION
  Report Type: 
  Country: None (occurrence: None)
  Receive Date: 20111028
  Receipt Date: 20110113
  Transmission Date: 20120403
  Serious: No
  Sender: FDA-Public Use
  Company Number: US-AMGEN-USASP2011002353

PATIENT
  Sex: Female

DRUGS (1)
  1. ENBREL [Suspect]
     Indication: RHEUMATOID ARTHRITIS
     Dosage: 50 MG, QWK
     Dates: start: 20090401

REACTIONS (13)
  - INJECTION SITE SWELLING [None]
  - HYPOAESTHESIA [None]
  - ARTHRALGIA [None]
  - PAIN IN EXTREMITY [None]
  - JOINT LOCK [None]
  - MUSCLE SPASMS [None]
  - INJECTION SITE PAIN [None]
  - INJECTION SITE HAEMATOMA [None]
  - GAIT DISTURBANCE [None]
  - MUSCULOSKELETAL STIFFNESS [None]
  - ORAL MUCOSAL ERUPTION [None]
  - CONTUSION [None]
  - MOUTH HAEMORRHAGE [None]
